FAERS Safety Report 10490025 (Version 1)
Quarter: 2014Q3

REPORT INFORMATION
  Report Type: Spontaneous
  Country: US (occurrence: None)
  Receive Date: 20140815
  Receipt Date: 20140815
  Transmission Date: 20150326
  Serious: Yes (Life-Threatening, Other)
  Sender: FDA-Public Use
  Company Number: ADR-2014-00585

PATIENT
  Sex: Male

DRUGS (2)
  1. BACLOFEN INTRATHECAL [Suspect]
     Active Substance: BACLOFEN
     Indication: NEUROPATHY PERIPHERAL
  2. MORPHINE INTRATHECAL [Suspect]
     Active Substance: MORPHINE

REACTIONS (3)
  - Overdose [None]
  - Pain [None]
  - Coma [None]
